FAERS Safety Report 7470557-5 (Version None)
Quarter: 2011Q2

REPORT INFORMATION
  Report Type: 
  Country: None (occurrence: None)
  Receive Date: 20110510
  Receipt Date: 20110421
  Transmission Date: 20111010
  Serious: No
  Sender: FDA-Public Use
  Company Number: US-B.I. PHARMACEUTICALS,INC./RIDGEFIELD-2011-BP-05488BP

PATIENT
  Age: 66 Year
  Sex: Male
  Weight: 62.6 kg

DRUGS (5)
  1. PRADAXA [Suspect]
     Indication: ATRIAL FIBRILLATION
     Dosage: 300 NR
     Route: 048
     Dates: start: 20101101, end: 20101201
  2. DILTIAZEM [Concomitant]
  3. LASIX [Concomitant]
  4. MTP [Concomitant]
  5. DIGOXIN [Concomitant]

REACTIONS (2)
  - RASH [None]
  - MYALGIA [None]
